FAERS Safety Report 5156847-X (Version None)
Quarter: 2006Q4

REPORT INFORMATION
  Report Type: 
  Country: None (occurrence: None)
  Receive Date: 20061115
  Receipt Date: 20061102
  Transmission Date: 20070319
  Serious: Yes (Hospitalization, Other)
  Sender: FDA-Public Use
  Company Number: 2006128887

PATIENT
  Age: 83 Year
  Sex: Female
  Weight: 58 kg

DRUGS (7)
  1. LYRICA [Suspect]
     Indication: NEURALGIA
     Dosage: 150 MG (75 MG, 2 IN 1 D), ORAL
     Route: 048
     Dates: start: 20061010, end: 20061001
  2. ACETAMINOPHEN W/ PROPOXYPHENE HCL [Concomitant]
  3. ESOMEPRAZOLE (ESOMEPRAZOLE) [Concomitant]
  4. LASIX [Concomitant]
  5. PAROXETINE [Concomitant]
  6. PREDNISOLONE [Concomitant]
  7. ASPIRIN [Concomitant]

REACTIONS (5)
  - CONFUSIONAL STATE [None]
  - DISORIENTATION [None]
  - FALL [None]
  - FRACTURE [None]
  - TRAUMATIC HAEMATOMA [None]
